FAERS Safety Report 9735741 (Version 1)
Quarter: 2013Q4

REPORT INFORMATION
  Report Type: Spontaneous
  Country: US (occurrence: US)
  Receive Date: 20131206
  Receipt Date: 20131206
  Transmission Date: 20140711
  Serious: No
  Sender: FDA-Public Use
  Company Number: US-GILEAD-2009-0022608

PATIENT
  Sex: Female
  Weight: 72.57 kg

DRUGS (10)
  1. LETAIRIS [Suspect]
     Indication: PULMONARY ARTERIAL HYPERTENSION
     Route: 048
     Dates: start: 20080126
  2. CELLCEPT [Concomitant]
  3. AMPICILLIN [Concomitant]
  4. LIPITOR [Concomitant]
  5. DAPSONE [Concomitant]
  6. CLONAZEPAM [Concomitant]
  7. BENTYL [Concomitant]
  8. ABILIFY [Concomitant]
  9. NORTRIPTYLINE HCL [Concomitant]
  10. OMEPRAZOLE [Concomitant]

REACTIONS (1)
  - Swelling [Unknown]
